FAERS Safety Report 9629425 (Version 1)
Quarter: 2013Q4

REPORT INFORMATION
  Report Type: Spontaneous
  Country: US (occurrence: US)
  Receive Date: 20131017
  Receipt Date: 20131017
  Transmission Date: 20140711
  Serious: No
  Sender: FDA-Public Use
  Company Number: US-ASTRAZENECA-2013SE55158

PATIENT
  Sex: Female

DRUGS (3)
  1. CRESTOR [Suspect]
     Indication: BLOOD CHOLESTEROL
     Route: 048
  2. HORMONE PILLS [Concomitant]
     Indication: MENOPAUSE
  3. SIMVASTATIN [Concomitant]

REACTIONS (2)
  - Blood cholesterol increased [Unknown]
  - Drug dose omission [Unknown]
